FAERS Safety Report 4338907-6 (Version None)
Quarter: 2004Q2

REPORT INFORMATION
  Report Type: 
  Country: None (occurrence: None)
  Receive Date: 20040409
  Receipt Date: 20040326
  Transmission Date: 20050107
  Serious: Yes (Other)
  Sender: FDA-Public Use
  Company Number: 1004186

PATIENT
  Age: 17 Year
  Sex: Male
  Weight: 54 kg

DRUGS (15)
  1. KEPPRA [Suspect]
     Indication: CONVULSION
     Dosage: 1250 MG PO
     Route: 047
     Dates: start: 20010910
  2. LAMOTRIGINE [Concomitant]
  3. PHENYTOIN [Concomitant]
  4. PREDNISOLONE [Concomitant]
  5. NITRAZEPAM [Concomitant]
  6. CHLORAL HYDRATE [Concomitant]
  7. DIAZEPAM [Concomitant]
  8. VALPROATE SODIUM [Concomitant]
  9. MIDAZOLAM HCL [Concomitant]
  10. GLYCOPYRRONIUM BROMIDE [Concomitant]
  11. ACETAMINOPHEN [Concomitant]
  12. LACTULOSE [Concomitant]
  13. PHENOBARBITAL TAB [Concomitant]
  14. INFLUENZA VIRUS [Concomitant]
  15. *INNARIZINE [Concomitant]

REACTIONS (4)
  - CONDITION AGGRAVATED [None]
  - CONTUSION [None]
  - FALL [None]
  - INJURY [None]
